FAERS Safety Report 7406872-0 (Version None)
Quarter: 2011Q2

REPORT INFORMATION
  Report Type: 
  Country: None (occurrence: None)
  Receive Date: 20110411
  Receipt Date: 20110228
  Transmission Date: 20111010
  Serious: Yes (Other)
  Sender: FDA-Public Use
  Company Number: US-BAXTER-2009BH013288

PATIENT
  Age: 51 Year
  Sex: Male
  Weight: 102 kg

DRUGS (53)
  1. HEPARIN SODIUM INJECTION [Suspect]
     Route: 042
     Dates: start: 20071123, end: 20071123
  2. HEPARIN SODIUM INJECTION [Suspect]
     Route: 014
     Dates: start: 20071124, end: 20071124
  3. HEPARIN SODIUM INJECTION [Suspect]
     Route: 040
     Dates: start: 20071123, end: 20071123
  4. HEPARIN SODIUM 5,000 UNITS IN DEXTROSE 5% [Suspect]
     Route: 041
     Dates: start: 20071128, end: 20071128
  5. HEPARIN SODIUM 5,000 UNITS IN DEXTROSE 5% [Suspect]
     Route: 041
     Dates: start: 20071128, end: 20071128
  6. HEPARIN SODIUM 5,000 UNITS IN DEXTROSE 5% [Suspect]
     Route: 041
     Dates: start: 20071130, end: 20071130
  7. HEPARIN SODIUM 5,000 UNITS IN DEXTROSE 5% [Suspect]
     Route: 041
     Dates: start: 20071128, end: 20071129
  8. HEPARIN SODIUM 5,000 UNITS IN DEXTROSE 5% [Suspect]
     Route: 041
     Dates: start: 20071128, end: 20071129
  9. ASPIRIN [Concomitant]
     Indication: PRODUCT USED FOR UNKNOWN INDICATION
     Route: 065
  10. HEPARIN SODIUM INJECTION [Suspect]
     Route: 042
     Dates: start: 20071123, end: 20071123
  11. HEPARIN SODIUM INJECTION [Suspect]
     Route: 014
     Dates: start: 20071128, end: 20071128
  12. HEPARIN SODIUM INJECTION [Suspect]
     Route: 014
     Dates: start: 20071128, end: 20071128
  13. HEPARIN SODIUM 5,000 UNITS IN DEXTROSE 5% [Suspect]
     Indication: CARDIAC VENTRICULOGRAM LEFT
     Route: 041
     Dates: start: 20071124, end: 20071125
  14. HEPARIN SODIUM 5,000 UNITS IN DEXTROSE 5% [Suspect]
     Indication: ANGIOPLASTY
     Route: 041
     Dates: start: 20071124, end: 20071125
  15. HEPARIN SODIUM 5,000 UNITS IN DEXTROSE 5% [Suspect]
     Route: 041
     Dates: start: 20071128, end: 20071128
  16. HEPARIN SODIUM 5,000 UNITS IN DEXTROSE 5% [Suspect]
     Route: 041
     Dates: start: 20071130, end: 20071130
  17. HEPARIN SODIUM INJECTION [Suspect]
     Route: 042
     Dates: start: 20071124, end: 20071124
  18. HEPARIN SODIUM INJECTION [Suspect]
     Route: 014
     Dates: start: 20071128, end: 20071128
  19. HEPARIN SODIUM 5,000 UNITS IN DEXTROSE 5% [Suspect]
     Indication: ARTERIOGRAM CORONARY
     Route: 041
     Dates: start: 20071124, end: 20071125
  20. HEPARIN SODIUM 5,000 UNITS IN DEXTROSE 5% [Suspect]
     Route: 041
     Dates: start: 20071128, end: 20071129
  21. HEPARIN SODIUM INJECTION [Suspect]
     Indication: ANGIOPLASTY
     Route: 042
     Dates: start: 20071123, end: 20071123
  22. HEPARIN SODIUM INJECTION [Suspect]
     Route: 014
     Dates: start: 20071124, end: 20071124
  23. HEPARIN SODIUM INJECTION [Suspect]
     Route: 042
     Dates: start: 20071124, end: 20071124
  24. HEPARIN SODIUM INJECTION [Suspect]
     Route: 014
     Dates: start: 20071124, end: 20071124
  25. HEPARIN SODIUM INJECTION [Suspect]
     Route: 040
     Dates: start: 20071123, end: 20071123
  26. HEPARIN SODIUM 5,000 UNITS IN DEXTROSE 5% [Suspect]
     Indication: CATHETERISATION CARDIAC
     Route: 041
     Dates: start: 20071124, end: 20071125
  27. HEPARIN SODIUM INJECTION [Suspect]
     Indication: CARDIAC VENTRICULOGRAM LEFT
     Route: 042
     Dates: start: 20071123, end: 20071123
  28. HEPARIN SODIUM INJECTION [Suspect]
     Indication: CATHETERISATION CARDIAC
     Route: 042
     Dates: start: 20071123, end: 20071123
  29. HEPARIN SODIUM INJECTION [Suspect]
     Route: 014
     Dates: start: 20071124, end: 20071124
  30. HEPARIN SODIUM INJECTION [Suspect]
     Route: 014
     Dates: start: 20071124, end: 20071124
  31. HEPARIN SODIUM INJECTION [Suspect]
     Route: 040
     Dates: start: 20071123, end: 20071123
  32. HEPARIN SODIUM 5,000 UNITS IN DEXTROSE 5% [Suspect]
     Indication: INTRACARDIAC THROMBUS
     Route: 041
     Dates: start: 20071124, end: 20071125
  33. HEPARIN SODIUM 5,000 UNITS IN DEXTROSE 5% [Suspect]
     Route: 041
     Dates: start: 20071128, end: 20071128
  34. HEPARIN SODIUM 5,000 UNITS IN DEXTROSE 5% [Suspect]
     Route: 041
     Dates: start: 20071128, end: 20071129
  35. INTEGRILIN [Suspect]
     Indication: ARTERIOGRAM CORONARY
     Route: 040
     Dates: start: 20071124
  36. HEPARIN SODIUM INJECTION [Suspect]
     Indication: ARTERIOGRAM CORONARY
     Route: 042
     Dates: start: 20071123, end: 20071123
  37. HEPARIN SODIUM INJECTION [Suspect]
     Route: 014
     Dates: start: 20071124, end: 20071124
  38. HEPARIN SODIUM INJECTION [Suspect]
     Route: 042
     Dates: start: 20071124, end: 20071124
  39. HEPARIN SODIUM INJECTION [Suspect]
     Route: 014
     Dates: start: 20071128, end: 20071128
  40. HEPARIN SODIUM INJECTION [Suspect]
     Route: 014
     Dates: start: 20071124, end: 20071124
  41. INTEGRILIN [Suspect]
     Indication: CARDIAC VENTRICULOGRAM LEFT
     Route: 040
     Dates: start: 20071124
  42. LOPRESSOR [Concomitant]
     Indication: PRODUCT USED FOR UNKNOWN INDICATION
     Route: 065
  43. HEPARIN SODIUM INJECTION [Suspect]
     Route: 042
     Dates: start: 20071123, end: 20071123
  44. HEPARIN SODIUM INJECTION [Suspect]
     Route: 042
     Dates: start: 20071123, end: 20071123
  45. HEPARIN SODIUM INJECTION [Suspect]
     Route: 014
     Dates: start: 20071124, end: 20071124
  46. HEPARIN SODIUM 5,000 UNITS IN DEXTROSE 5% [Suspect]
     Route: 041
     Dates: start: 20071130, end: 20071130
  47. HEPARIN SODIUM 5,000 UNITS IN DEXTROSE 5% [Suspect]
     Route: 041
     Dates: start: 20071128, end: 20071129
  48. INTEGRILIN [Suspect]
     Indication: CATHETERISATION CARDIAC
     Route: 040
     Dates: start: 20071124
  49. HEPARIN SODIUM INJECTION [Suspect]
     Route: 042
     Dates: start: 20071124, end: 20071124
  50. HEPARIN SODIUM INJECTION [Suspect]
     Route: 040
     Dates: start: 20071123, end: 20071123
  51. HEPARIN SODIUM 5,000 UNITS IN DEXTROSE 5% [Suspect]
     Route: 041
     Dates: start: 20071128, end: 20071128
  52. HEPARIN SODIUM 5,000 UNITS IN DEXTROSE 5% [Suspect]
     Route: 041
     Dates: start: 20071130, end: 20071130
  53. HEPARIN SODIUM 5,000 UNITS IN DEXTROSE 5% [Suspect]
     Route: 041
     Dates: start: 20071130, end: 20071130

REACTIONS (8)
  - HOT FLUSH [None]
  - BLOOD PRESSURE SYSTOLIC DECREASED [None]
  - CARDIOMEGALY [None]
  - ANAPHYLACTIC REACTION [None]
  - TACHYCARDIA [None]
  - IMMOBILE [None]
  - FEELING ABNORMAL [None]
  - HAEMODYNAMIC INSTABILITY [None]
